FAERS Safety Report 12994603 (Version 2)
Quarter: 2016Q4

REPORT INFORMATION
  Report Type: Spontaneous
  Country: JP (occurrence: JP)
  Receive Date: 20161202
  Receipt Date: 20161220
  Transmission Date: 20170207
  Serious: Yes (Disabling)
  Sender: FDA-Public Use
  Company Number: PHJP2016JP034884

PATIENT
  Age: 73 Year
  Sex: Female

DRUGS (1)
  1. ZOMETA [Suspect]
     Active Substance: ZOLEDRONIC ACID
     Indication: BONE LESION
     Dosage: UNK
     Route: 041
     Dates: start: 201404, end: 201504

REACTIONS (3)
  - Dental alveolar anomaly [Unknown]
  - Osteonecrosis of jaw [Unknown]
  - Tooth loss [Unknown]

NARRATIVE: CASE EVENT DATE: 201504
